FAERS Safety Report 8175807-8 (Version None)
Quarter: 2012Q1

REPORT INFORMATION
  Report Type: 
  Country: None (occurrence: None)
  Receive Date: 20120301
  Receipt Date: 20120221
  Transmission Date: 20120608
  Serious: Yes (Other)
  Sender: FDA-Public Use
  Company Number: US-BAYER-2012-019063

PATIENT
  Age: 63 Year
  Sex: Male

DRUGS (9)
  1. RED BLOOD CELLS [Concomitant]
     Dosage: 1 U, UNK
     Route: 042
  2. NORVASC [Concomitant]
  3. TRASYLOL [Suspect]
     Indication: CORONARY ARTERY BYPASS
     Dosage: 200 ML LOADING DOSE FOOLWED BY 500 CC/HR INFUSION
     Route: 042
     Dates: start: 20051028
  4. COZAAR [Concomitant]
  5. VERSED [Concomitant]
  6. TRASYLOL [Suspect]
     Indication: PHLEBECTOMY
  7. ATENOLOL [Concomitant]
  8. HEPARIN [Concomitant]
  9. PROTAMINE SULFATE [Concomitant]

REACTIONS (3)
  - RENAL FAILURE CHRONIC [None]
  - BLOOD UREA INCREASED [None]
  - BLOOD CREATININE INCREASED [None]
